FAERS Safety Report 6349067-4 (Version None)
Quarter: 2009Q3

REPORT INFORMATION
  Report Type: 
  Country: None (occurrence: None)
  Receive Date: 20090911
  Receipt Date: 20090828
  Transmission Date: 20100115
  Serious: Yes (Life-Threatening, Hospitalization)
  Sender: FDA-Public Use
  Company Number: DE-ELI_LILLY_AND_COMPANY-DE200907004341

PATIENT
  Sex: Male

DRUGS (4)
  1. EFFIENT [Suspect]
     Indication: THROMBOSIS IN DEVICE
     Dosage: 10 MG, UNK
     Dates: start: 20090607, end: 20090701
  2. EFFIENT [Suspect]
     Dosage: 10 D/F, DAILY (1/D)
     Dates: start: 20090728
  3. ASPIRIN [Concomitant]
     Dosage: 100 MG, UNK
  4. EMBOLEX [Concomitant]
     Indication: DEEP VEIN THROMBOSIS
     Dosage: UNK, DAILY (1/D)

REACTIONS (8)
  - CARDIAC ARREST [None]
  - HAEMORRHAGIC ANAEMIA [None]
  - HYPOKALAEMIA [None]
  - HYPOVOLAEMIC SHOCK [None]
  - LOWER GASTROINTESTINAL HAEMORRHAGE [None]
  - POST PROCEDURAL HAEMATOMA [None]
  - THROMBOCYTOSIS [None]
  - THROMBOSIS IN DEVICE [None]
